FAERS Safety Report 4711680-5 (Version None)
Quarter: 2005Q3

REPORT INFORMATION
  Report Type: 
  Country: None (occurrence: None)
  Receive Date: 20050708
  Receipt Date: 20050629
  Transmission Date: 20060218
  Serious: Yes (Other)
  Sender: FDA-Public Use
  Company Number: 2005094329

PATIENT
  Age: 86 Year
  Sex: Male

DRUGS (1)
  1. CELEBREX [Suspect]
     Indication: ILL-DEFINED DISORDER
     Dosage: 400 MG (200 MG, 2 IN 1 D), ORAL
     Route: 048

REACTIONS (3)
  - ARTHROPOD BITE [None]
  - DYSPEPSIA [None]
  - GENITAL INFECTION [None]
